FAERS Safety Report 9420573 (Version 1)
Quarter: 2013Q3

REPORT INFORMATION
  Report Type: Spontaneous
  Country: US (occurrence: US)
  Receive Date: 20130725
  Receipt Date: 20130725
  Transmission Date: 20140515
  Serious: No
  Sender: FDA-Public Use
  Company Number: US-ABBOTT-13P-163-1103596-00

PATIENT
  Sex: Female
  Weight: 79.45 kg

DRUGS (3)
  1. SYNTHROID [Suspect]
     Indication: THYROIDECTOMY
     Dosage: UNKNOWN DOSES
     Route: 048
     Dates: start: 1969
  2. SYNTHROID [Suspect]
     Indication: BASEDOW^S DISEASE
     Route: 048
     Dates: end: 20130610
  3. SYNTHROID [Suspect]
     Route: 048
     Dates: start: 20130611

REACTIONS (5)
  - Blood thyroid stimulating hormone decreased [Unknown]
  - Drug ineffective [Unknown]
  - Fatigue [Not Recovered/Not Resolved]
  - Migraine [Not Recovered/Not Resolved]
  - Hypothyroidism [Unknown]
